FAERS Safety Report 16598560 (Version 1)
Quarter: 2019Q3

REPORT INFORMATION
  Report Type: Spontaneous
  Country: US (occurrence: US)
  Receive Date: 20190719
  Receipt Date: 20190719
  Transmission Date: 20191004
  Serious: Yes (Other)
  Sender: FDA-Public Use
  Company Number: US-COOPERSURGICAL, INC.-US-2019CPS002175

PATIENT
  Sex: Female

DRUGS (2)
  1. PARAGARD T 380A [Suspect]
     Active Substance: COPPER
     Dosage: UNK
     Route: 015
  2. PARAGARD T 380A [Suspect]
     Active Substance: COPPER
     Indication: CONTRACEPTION
     Dosage: UNK
     Route: 015

REACTIONS (7)
  - Post procedural diarrhoea [Recovered/Resolved]
  - Pain [Recovered/Resolved]
  - Procedural shock [Recovered/Resolved]
  - Procedural vomiting [Recovered/Resolved]
  - Wrong technique in device usage process [Recovered/Resolved]
  - Ovarian cyst [Unknown]
  - Procedural pain [Recovered/Resolved]
